FAERS Safety Report 7816457-X (Version None)
Quarter: 2011Q4

REPORT INFORMATION
  Report Type: 
  Country: None (occurrence: None)
  Receive Date: 20111017
  Receipt Date: 20111003
  Transmission Date: 20120403
  Serious: Yes (Other)
  Sender: FDA-Public Use
  Company Number: HR-RANBAXY-2011RR-48824

PATIENT
  Age: 31 Year
  Sex: Female

DRUGS (19)
  1. TRAMADOL HYDROCHLORIDE/ACETAMINOPHEN [Suspect]
     Dosage: 2 DF, TID
     Route: 065
     Dates: start: 20090401
  2. PREGABALIN [Suspect]
     Indication: PAIN
     Dosage: 300 MG, BID
     Route: 065
     Dates: start: 20100301
  3. SERTRALINE HYDROCHLORIDE [Suspect]
     Dosage: 50 MG, QD
     Route: 065
     Dates: start: 20090401
  4. TRAMADOL HYDROCHLORIDE/ACETAMINOPHEN [Suspect]
     Dosage: UNK
     Route: 065
     Dates: start: 20100301
  5. BUPRENORPHINE [Suspect]
     Indication: PAIN
     Dosage: 70 UG/72H
     Route: 065
     Dates: start: 20090401
  6. CARBAMAZEPINE [Suspect]
     Indication: PAIN
     Dosage: 200 MG, TID
     Route: 065
     Dates: start: 20070901
  7. FENTANYL [Suspect]
     Indication: PAIN
     Dosage: 100 UG/72H
     Route: 065
     Dates: start: 20100301
  8. BACLOFEN [Suspect]
     Indication: PAIN
     Dosage: 10 MG, TID
     Route: 065
     Dates: start: 20070901
  9. BACLOFEN [Suspect]
     Dosage: UNK
     Route: 065
     Dates: start: 20100301
  10. TRAMADOL HYDROCHLORIDE AND ACETAMINOPHEN [Suspect]
     Indication: PAIN
     Dosage: 2 DF, TID
     Route: 065
     Dates: start: 20070901
  11. OXYCODONE HCL [Suspect]
     Indication: PAIN
     Dosage: 10 MG, TID
     Route: 065
     Dates: start: 20090401
  12. TRAMADOL HYDROCHLORIDE/ACETAMINOPHEN [Suspect]
     Dosage: 2 DF, TID
     Route: 065
     Dates: start: 20080501
  13. ESOMEPRAZOLE SODIUM [Suspect]
     Indication: PAIN
     Dosage: 20 MG, BID
     Route: 065
     Dates: start: 20100301
  14. SERTRALINE HYDROCHLORIDE [Suspect]
     Indication: PAIN
     Dosage: 1 DF, QD
     Route: 065
     Dates: start: 20080501
  15. BACLOFEN [Suspect]
     Dosage: 25 MG, TID
     Route: 065
     Dates: start: 20080501
  16. DIAZEPAM [Suspect]
     Indication: PAIN
     Dosage: 5 MG, QD
     Route: 065
     Dates: start: 20070901
  17. GABAPENTIN [Suspect]
     Indication: PAIN
     Dosage: 300 MG, TID
     Route: 065
     Dates: start: 20090401
  18. BACLOFEN [Suspect]
     Dosage: UNK
     Route: 065
     Dates: start: 20090401
  19. OXYCODONE HCL [Suspect]
     Dosage: 10 MG, UNK
     Route: 065
     Dates: start: 20100301

REACTIONS (16)
  - GASTROINTESTINAL MOTILITY DISORDER [None]
  - DIPLOPIA [None]
  - VOMITING [None]
  - DRUG INTERACTION [None]
  - CONFUSIONAL STATE [None]
  - ATAXIA [None]
  - PRURITUS [None]
  - SYNCOPE [None]
  - DIZZINESS [None]
  - FATIGUE [None]
  - SEDATION [None]
  - ASTHENIA [None]
  - NAUSEA [None]
  - OEDEMA [None]
  - HEADACHE [None]
  - CONSTIPATION [None]
